FAERS Safety Report 9283626 (Version 1)
Quarter: 2013Q2

REPORT INFORMATION
  Report Type: Spontaneous
  Country: GB (occurrence: None)
  Receive Date: 20130506
  Receipt Date: 20130506
  Transmission Date: 20140414
  Serious: Yes (Hospitalization, Other)
  Sender: FDA-Public Use
  Company Number: AUR-APL-2013-03423

PATIENT
  Age: 81 Year
  Sex: Female
  Weight: 76 kg

DRUGS (7)
  1. AMOXICILLIN + CLAVULANIC ACID [Suspect]
     Indication: PRODUCT USED FOR UNKNOWN INDICATION
  2. ATORVASTATIN (ATORVASTATIN) [Concomitant]
  3. BENDROFLUMETHIAZIDE (BENDROFLUMETHIAZIDE) [Concomitant]
  4. CLENIL MODULITE (BECLOMETASONE DIPROPIONATE) [Concomitant]
  5. PERMETHRIN (PERMETHIRIN) [Concomitant]
  6. RAMIPRIL (RAMIPRIL) [Concomitant]
  7. TRAVOPROST (TRAVOPROST) [Concomitant]

REACTIONS (1)
  - Jaundice [None]
